FAERS Safety Report 5481183-1 (Version None)
Quarter: 2007Q4

REPORT INFORMATION
  Report Type: 
  Country: None (occurrence: None)
  Receive Date: 20071010
  Receipt Date: 20071003
  Transmission Date: 20080405
  Serious: Yes (Hospitalization, Other)
  Sender: FDA-Public Use
  Company Number: PHBS2007JP14386

PATIENT
  Age: 41 Year
  Sex: Female

DRUGS (4)
  1. NEORAL [Suspect]
     Indication: MYASTHENIA GRAVIS
     Dosage: 5 MG/KG/D
     Route: 048
     Dates: start: 20070518, end: 20070603
  2. NEORAL [Suspect]
     Dosage: 3 MG/KG/D
     Route: 048
     Dates: start: 20070604, end: 20070912
  3. NEORAL [Suspect]
     Dosage: 200 MG, QD
     Route: 048
     Dates: start: 20070913
  4. STEROIDS NOS [Concomitant]
     Indication: MYASTHENIA GRAVIS
     Dosage: UNK, UNK
     Route: 065

REACTIONS (4)
  - CREATININE RENAL CLEARANCE DECREASED [None]
  - MYASTHENIA GRAVIS CRISIS [None]
  - RENAL DISORDER [None]
  - THYMECTOMY [None]
